FAERS Safety Report 25835807 (Version 1)
Quarter: 2025Q3

REPORT INFORMATION
  Report Type: Spontaneous
  Country: US (occurrence: US)
  Receive Date: 20250923
  Receipt Date: 20250923
  Transmission Date: 20251021
  Serious: Yes (Other)
  Sender: ABBVIE
  Company Number: US-ABBVIE-6470217

PATIENT
  Sex: Female

DRUGS (1)
  1. REFRESH CLASSIC [Suspect]
     Active Substance: POLYVINYL ALCOHOL\POVIDONE
     Indication: Product used for unknown indication
     Route: 047

REACTIONS (1)
  - Cataract [Unknown]
